FAERS Safety Report 8190387-9 (Version None)
Quarter: 2012Q1

REPORT INFORMATION
  Report Type: 
  Country: None (occurrence: None)
  Receive Date: 20120221
  Receipt Date: 20111228
  Transmission Date: 20120608
  Serious: No
  Sender: FDA-Public Use
  Company Number: 1000026584

PATIENT
  Age: 86 Year
  Sex: Female

DRUGS (5)
  1. VIIBRYD [Suspect]
     Indication: ANXIETY
     Dosage: 10 MG (10 MG,1 IN 1 D),ORAL: 20 MG (20 MG,1 IN 1 D),ORAL : 40 MG (40 MG,1 IN 1 D),ORAL
     Route: 048
     Dates: start: 20110101
  2. VIIBRYD [Suspect]
     Indication: ANXIETY
     Dosage: 10 MG (10 MG,1 IN 1 D),ORAL: 20 MG (20 MG,1 IN 1 D),ORAL : 40 MG (40 MG,1 IN 1 D),ORAL
     Route: 048
     Dates: start: 20110101, end: 20110101
  3. VIIBRYD [Suspect]
     Indication: ANXIETY
     Dosage: 10 MG (10 MG,1 IN 1 D),ORAL: 20 MG (20 MG,1 IN 1 D),ORAL : 40 MG (40 MG,1 IN 1 D),ORAL
     Route: 048
     Dates: start: 20111101, end: 20110101
  4. REMERON [Concomitant]
  5. KLONOPIN [Concomitant]

REACTIONS (3)
  - MALAISE [None]
  - NERVOUSNESS [None]
  - OFF LABEL USE [None]
